FAERS Safety Report 18273353 (Version 1)
Quarter: 2020Q3

REPORT INFORMATION
  Report Type: Spontaneous
  Country: US (occurrence: US)
  Receive Date: 20200916
  Receipt Date: 20200916
  Transmission Date: 20201103
  Serious: No
  Sender: FDA-Public Use
  Company Number: US-THERAPEUTICSMD-2020TMD03210

PATIENT
  Sex: Female
  Weight: 69.39 kg

DRUGS (4)
  1. IMVEXXY [Suspect]
     Active Substance: ESTRADIOL
     Dosage: 4 ?G, 2X/WEEK BEFORE BED
     Route: 067
     Dates: start: 2020
  2. IMVEXXY [Suspect]
     Active Substance: ESTRADIOL
     Indication: URINARY TRACT INFECTION
     Dosage: 4 ?G, 1X/DAY BEFORE BED
     Route: 067
     Dates: start: 202002, end: 2020
  3. CRANBERRY. [Concomitant]
     Active Substance: CRANBERRY
     Dosage: 500 MG, 1X/DAY
  4. URINARY TRACT INFECTION TEA [Concomitant]

REACTIONS (6)
  - Bladder spasm [Recovering/Resolving]
  - Weight increased [Not Recovered/Not Resolved]
  - Product dose omission issue [Recovered/Resolved]
  - Product residue present [Not Recovered/Not Resolved]
  - Off label use [Not Recovered/Not Resolved]
  - Discomfort [Recovering/Resolving]

NARRATIVE: CASE EVENT DATE: 2020
